FAERS Safety Report 25073455 (Version 2)
Quarter: 2025Q3

REPORT INFORMATION
  Report Type: Report from Study
  Country: US (occurrence: US)
  Receive Date: 20250313
  Receipt Date: 20250803
  Transmission Date: 20251021
  Serious: Yes (Other)
  Sender: ALEXION PHARMACEUTICALS
  Company Number: US-AstraZeneca-CH-00823949A

PATIENT
  Age: 62 Year
  Sex: Female

DRUGS (1)
  1. OSIMERTINIB [Suspect]
     Active Substance: OSIMERTINIB
     Indication: Lung carcinoma cell type unspecified recurrent

REACTIONS (8)
  - Metastases to central nervous system [Unknown]
  - Metastases to lymph nodes [Unknown]
  - Metastases to chest wall [Unknown]
  - Erythema [Unknown]
  - Vocal cord paralysis [Unknown]
  - Cough [Unknown]
  - Dry throat [Unknown]
  - Dysphonia [Unknown]

NARRATIVE: CASE EVENT DATE: 20250307
